FAERS Safety Report 5014318-5 (Version None)
Quarter: 2006Q2

REPORT INFORMATION
  Report Type: 
  Country: None (occurrence: None)
  Receive Date: 20060414
  Receipt Date: 20060112
  Transmission Date: 20061013
  Serious: No
  Sender: FDA-Public Use
  Company Number: 2005SP003894

PATIENT
  Age: 56 Year
  Sex: Male
  Weight: 87.0906 kg

DRUGS (4)
  1. LUNESTA [Suspect]
     Indication: INSOMNIA
     Dosage: 2 MG;HS;ORAL
     Route: 048
     Dates: start: 20051105
  2. FLECAINIDE ACETATE [Concomitant]
  3. CARDIZEM [Concomitant]
  4. NEXIUM [Concomitant]

REACTIONS (4)
  - DRUG INEFFECTIVE [None]
  - DRY MOUTH [None]
  - DYSGEUSIA [None]
  - INSOMNIA [None]
